FAERS Safety Report 10989104 (Version 3)
Quarter: 2015Q3

REPORT INFORMATION
  Report Type: Spontaneous
  Country: DE (occurrence: DE)
  Receive Date: 20150406
  Receipt Date: 20150702
  Transmission Date: 20151125
  Serious: Yes (Life-Threatening, Hospitalization, Disabling, Other)
  Sender: FDA-Public Use
  Company Number: DE-UCBSA-2015009905

PATIENT
  Age: 22 Year
  Sex: Female

DRUGS (15)
  1. LEVETIRACETAM. [Suspect]
     Active Substance: LEVETIRACETAM
     Indication: PRODUCT USED FOR UNKNOWN INDICATION
     Dosage: 4500MG
     Route: 048
     Dates: start: 20111215, end: 201501
  2. PROPOFOL. [Concomitant]
     Active Substance: PROPOFOL
     Dosage: 8
     Dates: start: 20111215, end: 20111218
  3. LACOSAMIDE [Concomitant]
     Active Substance: LACOSAMIDE
     Indication: PRODUCT USED FOR UNKNOWN INDICATION
     Dosage: 3
     Dates: start: 20111216, end: 20111222
  4. LACOSAMIDE [Concomitant]
     Active Substance: LACOSAMIDE
     Dosage: 4
     Dates: start: 201112, end: 201310
  5. LTG [Concomitant]
     Indication: PRODUCT USED FOR UNKNOWN INDICATION
     Dosage: 3.25
     Dates: start: 201212, end: 201212
  6. PHENYTOIN. [Concomitant]
     Active Substance: PHENYTOIN
     Indication: PRODUCT USED FOR UNKNOWN INDICATION
     Dosage: 22.5
     Dates: start: 20111216, end: 20111216
  7. LTG [Concomitant]
     Dosage: 3.75
     Dates: start: 201301, end: 201401
  8. PERAMPANEL [Concomitant]
     Active Substance: PERAMPANEL
     Dosage: 10
     Dates: start: 201304, end: 201310
  9. PHENYTOIN. [Concomitant]
     Active Substance: PHENYTOIN
     Dosage: 3
     Dates: start: 20111220, end: 20111221
  10. LACOSAMIDE [Concomitant]
     Active Substance: LACOSAMIDE
     Dosage: 6
     Dates: start: 201401, end: 201408
  11. PROPOFOL. [Concomitant]
     Active Substance: PROPOFOL
     Indication: PRODUCT USED FOR UNKNOWN INDICATION
     Dosage: 8
     Dates: start: 20111213, end: 20111213
  12. PERAMPANEL [Concomitant]
     Active Substance: PERAMPANEL
     Indication: PRODUCT USED FOR UNKNOWN INDICATION
     Dosage: 4
     Dates: start: 201212, end: 201212
  13. LEVETIRACETAM. [Suspect]
     Active Substance: LEVETIRACETAM
     Indication: PRODUCT USED FOR UNKNOWN INDICATION
     Dosage: UNKNOWN DOSE
     Route: 042
     Dates: start: 20111215, end: 201501
  14. PHENYTOIN. [Concomitant]
     Active Substance: PHENYTOIN
     Dosage: 7.5
     Dates: start: 20111217, end: 20111219
  15. LTG [Concomitant]
     Dosage: 3.75
     Dates: start: 201404, end: 201408

REACTIONS (5)
  - Hepatotoxicity [Unknown]
  - Overdose [Unknown]
  - Hepatic cirrhosis [Not Recovered/Not Resolved]
  - Off label use [Unknown]
  - Coma hepatic [Unknown]

NARRATIVE: CASE EVENT DATE: 201112
